FAERS Safety Report 6933449-3 (Version None)
Quarter: 2010Q3

REPORT INFORMATION
  Report Type: 
  Country: None (occurrence: None)
  Receive Date: 20100820
  Receipt Date: 20100812
  Transmission Date: 20110219
  Serious: Yes (Other)
  Sender: FDA-Public Use
  Company Number: US-PFIZER INC-2010102027

PATIENT
  Sex: Male

DRUGS (2)
  1. ACCUPRIL [Suspect]
     Dosage: 40 MG, 1X/DAY
  2. CRESTOR [Concomitant]

REACTIONS (1)
  - BLOOD PRESSURE DECREASED [None]
